FAERS Safety Report 21497349 (Version 1)
Quarter: 2022Q4

REPORT INFORMATION
  Report Type: Spontaneous
  Country: US (occurrence: None)
  Receive Date: 20221021
  Receipt Date: 20221021
  Transmission Date: 20230113
  Serious: Yes (Congenital Anomaly)
  Sender: FDA-Public Use
  Company Number: None

PATIENT
  Age: 85 Year
  Sex: Male

DRUGS (1)
  1. CAPECITABINE [Suspect]
     Active Substance: CAPECITABINE
     Dosage: 1000MG DAILY ORAL?
     Route: 048
     Dates: start: 202208, end: 202210

REACTIONS (4)
  - Atrial fibrillation [None]
  - Thrombosis [None]
  - Dry skin [None]
  - Feeling abnormal [None]

NARRATIVE: CASE EVENT DATE: 20221006
